FAERS Safety Report 9846951 (Version 1)
Quarter: 2014Q1

REPORT INFORMATION
  Report Type: Spontaneous
  Country: US (occurrence: US)
  Receive Date: 20140127
  Receipt Date: 20140127
  Transmission Date: 20141002
  Serious: Yes (Hospitalization)
  Sender: FDA-Public Use
  Company Number: US-ELI_LILLY_AND_COMPANY-US201401005161

PATIENT
  Sex: Male

DRUGS (6)
  1. CYMBALTA [Suspect]
     Indication: DEPRESSION
     Dosage: 60 MG, QD
     Route: 065
  2. CARDIZEM                           /00489701/ [Concomitant]
  3. IMDUR [Concomitant]
  4. SOTALOL [Concomitant]
  5. CELEBREX [Concomitant]
  6. POTASSIUM [Concomitant]
     Dosage: 60 UNK, UNK

REACTIONS (1)
  - Pancreatitis [Not Recovered/Not Resolved]
